FAERS Safety Report 15765309 (Version 3)
Quarter: 2019Q1

REPORT INFORMATION
  Report Type: Spontaneous
  Country: JP (occurrence: JP)
  Receive Date: 20181227
  Receipt Date: 20190208
  Transmission Date: 20190417
  Serious: Yes (Hospitalization, Other)
  Sender: FDA-Public Use
  Company Number: JP-SA-2018SA390689

PATIENT
  Age: 75 Year
  Sex: Female

DRUGS (2)
  1. OXALIPLATIN. [Suspect]
     Active Substance: OXALIPLATIN
     Indication: COLON CANCER
     Dosage: UNK UNK, QD
     Route: 041
  2. XELODA [Suspect]
     Active Substance: CAPECITABINE
     Indication: COLON CANCER
     Dosage: UNK UNK, BID
     Route: 048

REACTIONS (3)
  - Mucous membrane disorder [Unknown]
  - Diarrhoea [Unknown]
  - Pneumatosis intestinalis [Recovering/Resolving]
